FAERS Safety Report 17551987 (Version 1)
Quarter: 2020Q1

REPORT INFORMATION
  Report Type: Spontaneous
  Country: US (occurrence: US)
  Receive Date: 20200317
  Receipt Date: 20200317
  Transmission Date: 20200409
  Serious: No
  Sender: FDA-Public Use
  Company Number: US-LEXICON PHARMACEUTICALS, INC-20-1606-00198

PATIENT
  Age: 53 Year
  Sex: Female

DRUGS (5)
  1. XERMELO [Suspect]
     Active Substance: TELOTRISTAT ETHYL
     Indication: CARCINOID SYNDROME
     Dates: start: 20171212
  2. VITAMIN C [Concomitant]
     Active Substance: ASCORBIC ACID
  3. SIMVASTATIN. [Concomitant]
     Active Substance: SIMVASTATIN
  4. VITAMIN E [Concomitant]
     Active Substance: .ALPHA.-TOCOPHEROL
  5. FLAXSEED [Concomitant]
     Active Substance: FLAX SEED

REACTIONS (1)
  - Drug ineffective [Unknown]
